FAERS Safety Report 11964891 (Version 7)
Quarter: 2019Q3

REPORT INFORMATION
  Report Type: Report from Study
  Country: US (occurrence: US)
  Receive Date: 20160127
  Receipt Date: 20190909
  Transmission Date: 20191004
  Serious: Yes (Other)
  Sender: FDA-Public Use
  Company Number: US-ROCHE-1227834

PATIENT
  Sex: Female

DRUGS (6)
  1. TRASTUZUMAB. [Suspect]
     Active Substance: TRASTUZUMAB
     Indication: BREAST CANCER
     Route: 065
  2. CYCLOPHOSPHAMIDE. [Suspect]
     Active Substance: CYCLOPHOSPHAMIDE
     Indication: BREAST CANCER
     Route: 065
  3. FLUOROURACIL. [Suspect]
     Active Substance: FLUOROURACIL
     Indication: BREAST CANCER
     Dosage: ON DAYS 1 AND 8, EVERY 28 DAYS ONE CYCLE FOR 6 CYCLES
     Route: 042
  4. CAPECITABINE. [Suspect]
     Active Substance: CAPECITABINE
     Indication: BREAST CANCER
     Dosage: FOR 14 DAYS FOLLOWED BY A 7-DAY REST PERIOD FOR SIX CYCLES
     Route: 048
  5. DOXORUBICIN [Suspect]
     Active Substance: DOXORUBICIN
     Indication: BREAST CANCER
     Dosage: ON DAY 1; CYCLES WERE REPEATED EVERY 21 DAYS FOR FOUR CYCLES
     Route: 042
  6. METHOTREXATE. [Suspect]
     Active Substance: METHOTREXATE
     Indication: BREAST CANCER
     Dosage: ON DAYS 1 AND 8, EVERY 28 DAYS ONE CYCLE FOR SIX CYCLES
     Route: 042

REACTIONS (23)
  - Thrombocytopenia [Unknown]
  - Palmar-plantar erythrodysaesthesia syndrome [Unknown]
  - Thrombosis [Unknown]
  - Anaemia [Unknown]
  - Fatigue [Unknown]
  - Mucosal inflammation [Unknown]
  - Neutropenia [Unknown]
  - Vomiting [Unknown]
  - Infarction [Unknown]
  - Colitis [Unknown]
  - Cardiovascular disorder [Unknown]
  - Nausea [Unknown]
  - Infection [Unknown]
  - Myelodysplastic syndrome [Unknown]
  - Leukopenia [Unknown]
  - Diarrhoea [Unknown]
  - Febrile neutropenia [Unknown]
  - Embolism [Unknown]
  - Myocardial ischaemia [Unknown]
  - Upper respiratory tract infection [Unknown]
  - Acute respiratory distress syndrome [Unknown]
  - Haemorrhage intracranial [Unknown]
  - Haemorrhage [Unknown]
